FAERS Safety Report 24646362 (Version 2)
Quarter: 2025Q1

REPORT INFORMATION
  Report Type: Spontaneous
  Country: PL (occurrence: PL)
  Receive Date: 20241121
  Receipt Date: 20250102
  Transmission Date: 20250409
  Serious: Yes (Other)
  Sender: ALEXION PHARMACEUTICALS
  Company Number: PL-ASTRAZENECA-202411EEA013337PL

PATIENT
  Age: 26 Year

DRUGS (4)
  1. SAPHNELO [Suspect]
     Active Substance: ANIFROLUMAB-FNIA
  2. SAPHNELO [Suspect]
     Active Substance: ANIFROLUMAB-FNIA
     Route: 048
  3. SAPHNELO [Suspect]
     Active Substance: ANIFROLUMAB-FNIA
  4. SAPHNELO [Suspect]
     Active Substance: ANIFROLUMAB-FNIA
     Route: 048

REACTIONS (3)
  - Leukopenia [Unknown]
  - Condition aggravated [Unknown]
  - Drug ineffective [Unknown]
